FAERS Safety Report 21719605 (Version 3)
Quarter: 2023Q1

REPORT INFORMATION
  Report Type: Spontaneous
  Country: US (occurrence: US)
  Receive Date: 20221213
  Receipt Date: 20230116
  Transmission Date: 20230417
  Serious: Yes (Other)
  Sender: FDA-Public Use
  Company Number: US-ORGANON-O2212USA000520

PATIENT
  Sex: Female
  Weight: 56.236 kg

DRUGS (1)
  1. NEXPLANON [Suspect]
     Active Substance: ETONOGESTREL
     Indication: Contraception
     Dosage: 1 IMPLANT OF 68 MILLIGRAM; INSERTED NEXPLANON APPROXIMATELY IN 2020 (TWO YEARS AGO)
     Route: 059
     Dates: start: 20200325, end: 20221121

REACTIONS (2)
  - Ectopic pregnancy with contraceptive device [Recovered/Resolved]
  - Unintended pregnancy [Recovered/Resolved]

NARRATIVE: CASE EVENT DATE: 20220101
